FAERS Safety Report 20017465 (Version 1)
Quarter: 2021Q4

REPORT INFORMATION
  Report Type: Spontaneous
  Country: US (occurrence: US)
  Receive Date: 20211030
  Receipt Date: 20211030
  Transmission Date: 20220303
  Serious: Yes (Hospitalization, Other)
  Sender: FDA-Public Use
  Company Number: US-MLMSERVICE-20211013-3162881-1

PATIENT
  Age: 67 Year
  Sex: Female

DRUGS (1)
  1. GEMCITABINE HYDROCHLORIDE [Suspect]
     Active Substance: GEMCITABINE HYDROCHLORIDE
     Indication: Pancreatic carcinoma metastatic

REACTIONS (6)
  - Ventricular hypokinesia [Recovering/Resolving]
  - Sinus tachycardia [Recovering/Resolving]
  - Pleural effusion [Recovering/Resolving]
  - Cardiomyopathy acute [Recovering/Resolving]
  - Pulmonary oedema [Recovering/Resolving]
  - Hypervolaemia [Recovering/Resolving]
